FAERS Safety Report 19295261 (Version 1)
Quarter: 2021Q2

REPORT INFORMATION
  Report Type: Spontaneous
  Country: ES (occurrence: ES)
  Receive Date: 20210524
  Receipt Date: 20210524
  Transmission Date: 20210717
  Serious: Yes (Hospitalization)
  Sender: FDA-Public Use
  Company Number: NVSC2021ES110730

PATIENT
  Age: 66 Year
  Sex: Male
  Weight: 50 kg

DRUGS (4)
  1. PROLEUKIN [Suspect]
     Active Substance: ALDESLEUKIN
     Indication: NEOPLASM
     Dosage: 162 MG
     Route: 042
     Dates: start: 20210430, end: 20210502
  2. FLUDARABINE [Suspect]
     Active Substance: FLUDARABINE PHOSPHATE
     Indication: NEOPLASM
     Dosage: 35 MG
     Route: 042
     Dates: start: 20210424, end: 20210428
  3. CYCLOPHOSPHAMIDE. [Suspect]
     Active Substance: CYCLOPHOSPHAMIDE
     Indication: NEOPLASM
     Dosage: 60 MG
     Route: 042
     Dates: start: 20210422, end: 20210423
  4. PEMBROLIZUMAB. [Suspect]
     Active Substance: PEMBROLIZUMAB
     Indication: NEOPLASM
     Dosage: 200 MG
     Route: 042
     Dates: start: 20210303, end: 20210303

REACTIONS (1)
  - Respiratory failure [Recovered/Resolved]

NARRATIVE: CASE EVENT DATE: 20210505
